FAERS Safety Report 9557911 (Version 1)
Quarter: 2013Q3

REPORT INFORMATION
  Report Type: Spontaneous
  Country: US (occurrence: None)
  Receive Date: 20130726
  Receipt Date: 20130726
  Transmission Date: 20140515
  Serious: Yes (Hospitalization)
  Sender: FDA-Public Use
  Company Number: UTC-027226

PATIENT
  Age: 43 Year
  Sex: Female
  Weight: 72.73 kg

DRUGS (4)
  1. REMODULIN [Suspect]
     Indication: PULMONARY ARTERIAL HYPERTENSION
     Dosage: 0.12 UG/KG 1 IN 1 MIN
     Route: 041
     Dates: start: 20071120
  2. REVATO (SILDEDNAFIL CITRATE) [Concomitant]
  3. TRACLEER (BOSENTAN)(UNKNOWN) [Concomitant]
  4. COUMADIN (WARFARIN SODIUM) (UNKNOWN) [Concomitant]

REACTIONS (1)
  - Device related infection [None]
